FAERS Safety Report 17487364 (Version 1)
Quarter: 2020Q1

REPORT INFORMATION
  Report Type: Spontaneous
  Country: IL (occurrence: IL)
  Receive Date: 20200303
  Receipt Date: 20200303
  Transmission Date: 20200409
  Serious: Yes (Hospitalization, Other)
  Sender: FDA-Public Use
  Company Number: IL-GLAXOSMITHKLINE-IL2020GSK034459

PATIENT
  Age: 5 Year
  Sex: Male

DRUGS (2)
  1. LAMOTRIGINE. [Suspect]
     Active Substance: LAMOTRIGINE
     Indication: PRODUCT USED FOR UNKNOWN INDICATION
     Dosage: UNK
  2. VALPROIC ACID. [Concomitant]
     Active Substance: VALPROIC ACID
     Indication: DROP ATTACKS
     Dosage: UNK

REACTIONS (12)
  - Pyrexia [Recovered/Resolved]
  - Nikolsky^s sign [Recovered/Resolved]
  - Feeding disorder [Unknown]
  - Decreased activity [Unknown]
  - Malaise [Recovered/Resolved]
  - Toxic epidermal necrolysis [Recovered/Resolved]
  - Staphylococcal infection [Unknown]
  - Rash papular [Recovered/Resolved]
  - Scab [Unknown]
  - Conjunctivitis [Recovered/Resolved]
  - Skin necrosis [Recovered/Resolved]
  - Dermatitis bullous [Recovered/Resolved]
